FAERS Safety Report 5185090-3 (Version None)
Quarter: 2006Q4

REPORT INFORMATION
  Report Type: 
  Country: None (occurrence: None)
  Receive Date: 20061212
  Receipt Date: 20061205
  Transmission Date: 20070319
  Serious: Yes (Hospitalization)
  Sender: FDA-Public Use
  Company Number: 163-21880-06110814

PATIENT
  Age: 53 Year
  Sex: Female

DRUGS (15)
  1. REVLIMID [Suspect]
     Indication: MULTIPLE MYELOMA
     Dosage: 25 MG, 1 IN 1 D, ORAL
     Route: 048
     Dates: start: 20060901, end: 20061027
  2. REVLIMID [Suspect]
     Indication: MULTIPLE MYELOMA
     Dosage: 25 MG, 1 IN 1 D, ORAL
     Route: 048
     Dates: start: 20061113
  3. VENLAFAXINE (VENLAFAXINE) (CAPSULES) [Concomitant]
  4. ACETAMINOPHEN [Concomitant]
  5. ASA EC (ACETYLSALICYLIC ACID) [Concomitant]
  6. CALCIUM WITH VITAMIN D (CALCIUM WITH VITAMIN D) [Concomitant]
  7. CEFTRIAXONE [Concomitant]
  8. DEXAMETHASONE TAB [Concomitant]
  9. ENOXAPARIN SODIUM [Concomitant]
  10. LINEZOLID [Concomitant]
  11. MORPHINE [Concomitant]
  12. MULTI-VITAMIN [Concomitant]
  13. NALOXONE [Concomitant]
  14. PAMIDRONATE DISODIUM [Concomitant]
  15. PROCHLORPERAZINE [Concomitant]

REACTIONS (8)
  - ABSCESS OF EYELID [None]
  - BLOOD ALKALINE PHOSPHATASE INCREASED [None]
  - CELLULITIS [None]
  - EYE INFECTION [None]
  - EYE PAIN [None]
  - EYE SWELLING [None]
  - NEUTROPENIA [None]
  - VISUAL DISTURBANCE [None]
